FAERS Safety Report 12387015 (Version 2)
Quarter: 2016Q3

REPORT INFORMATION
  Report Type: Report from Study
  Country: BR (occurrence: BR)
  Receive Date: 20160519
  Receipt Date: 20160803
  Transmission Date: 20161109
  Serious: Yes (Other)
  Sender: FDA-Public Use
  Company Number: BR-ABBVIE-16P-020-1633047-00

PATIENT
  Sex: Female
  Weight: 75 kg

DRUGS (1)
  1. SYNTHROID [Suspect]
     Active Substance: LEVOTHYROXINE SODIUM
     Indication: HYPOTHYROIDISM
     Dosage: DAILY DOSE: 1 TABLET (75 MCG), ONCE A DAY (MORNING)
     Route: 048
     Dates: start: 2010

REACTIONS (1)
  - Thyroid cyst [Recovered/Resolved]

NARRATIVE: CASE EVENT DATE: 2016
